FAERS Safety Report 9267171 (Version 2)
Quarter: 2013Q2

REPORT INFORMATION
  Report Type: Report from Study
  Country: JP (occurrence: JP)
  Receive Date: 20130502
  Receipt Date: 20130524
  Transmission Date: 20140414
  Serious: Yes (Hospitalization)
  Sender: FDA-Public Use
  Company Number: JP-SHIRE-CQT4-2013-00003

PATIENT
  Age: 15 Year
  Sex: Male
  Weight: 49 kg

DRUGS (32)
  1. VELAGLUCERASE ALFA [Suspect]
     Indication: GAUCHER^S DISEASE
     Dosage: 2800 IU, 1X/2WKS(7 VIALS)
     Route: 041
     Dates: start: 20120609
  2. NADIFLOXACIN [Concomitant]
     Indication: ACNE
     Dosage: UNK
     Route: 062
     Dates: start: 201107
  3. PROCATEROL HYDROCHLORIDE [Concomitant]
     Indication: OROPHARYNGEAL PAIN
     Dosage: UNK
     Route: 048
     Dates: start: 20121208, end: 20121215
  4. CARBOCISTEINE [Concomitant]
     Indication: OROPHARYNGEAL PAIN
     Dosage: UNK
     Route: 048
     Dates: start: 20121208, end: 20121215
  5. CLARITHROMYCIN [Concomitant]
     Indication: NASOPHARYNGITIS
     Dosage: UNK
     Route: 048
     Dates: start: 20121219, end: 20121226
  6. PROCATEROL HYDROCHLORIDE [Concomitant]
     Indication: NASOPHARYNGITIS
     Dosage: UNK
     Route: 048
     Dates: start: 20121219, end: 20121226
  7. CARBOCISTEINE [Concomitant]
     Indication: NASOPHARYNGITIS
     Dosage: UNK
     Route: 048
     Dates: start: 20121219, end: 20121226
  8. AMOXICILLIN [Concomitant]
     Indication: OROPHARYNGEAL PAIN
     Dosage: UNK
     Route: 048
     Dates: start: 20121208, end: 20121215
  9. GATIFLOXACIN [Concomitant]
     Indication: RETINAL DETACHMENT
     Dosage: UNK
     Dates: start: 20121227, end: 20130106
  10. LEVOFLOXACIN HYDRATE [Concomitant]
     Indication: RETINAL DETACHMENT
     Dosage: UNK
     Dates: start: 20130107
  11. DEXAMETHASONE [Concomitant]
     Indication: RETINAL DETACHMENT
     Dosage: UNK
     Dates: start: 20130107
  12. BROMFENAC SODIUM [Concomitant]
     Indication: RETINAL DETACHMENT
     Dosage: UNK
     Dates: start: 20130107
  13. TROPICAMIDE [Concomitant]
     Indication: RETINAL DETACHMENT
     Dosage: UNK
     Dates: start: 20130107, end: 20130107
  14. PHENYLEPHRINE HYDROCHLORIDE [Concomitant]
     Indication: RETINAL DETACHMENT
     Dosage: UNK
     Dates: start: 20130107, end: 20130107
  15. DICLOFENAC SODIUM [Concomitant]
     Indication: RETINAL DETACHMENT
     Dosage: UNK
     Dates: start: 20130107
  16. CEFDINIR [Concomitant]
     Indication: RETINAL DETACHMENT
     Dosage: UNK
     Route: 048
     Dates: start: 20130107, end: 20130109
  17. TEPRENONE [Concomitant]
     Indication: RETINAL DETACHMENT
     Dosage: UNK
     Route: 048
     Dates: start: 20130107, end: 20130109
  18. SEVOFLURANE [Concomitant]
     Indication: RETINAL DETACHMENT
     Dosage: UNK
     Route: 055
     Dates: start: 20130108, end: 20130108
  19. FENTANYL CITRATE [Concomitant]
     Indication: RETINAL DETACHMENT
     Dosage: UNK
     Route: 042
     Dates: start: 20130108, end: 20130108
  20. REMIFENTANIL HYDROCHLORIDE [Concomitant]
     Indication: RETINAL DETACHMENT
     Dosage: UNK
     Route: 042
     Dates: start: 20130108, end: 20130108
  21. ROCURONIUM BROMIDE [Concomitant]
     Indication: RETINAL DETACHMENT
     Dosage: UNK
     Route: 042
     Dates: start: 20130108, end: 20130108
  22. DROPERIDOL [Concomitant]
     Indication: RETINAL DETACHMENT
     Dosage: UNK
     Route: 042
     Dates: start: 20130108, end: 20130108
  23. PROPOFOL [Concomitant]
     Indication: RETINAL DETACHMENT
     Dosage: UNK
     Route: 042
     Dates: start: 20130108, end: 20130108
  24. SUGAMMADEX SODIUM [Concomitant]
     Indication: RETINAL DETACHMENT
     Dosage: UNK
     Route: 042
     Dates: start: 20130108, end: 20130108
  25. CEFMETAZOLE SODIUM [Concomitant]
     Indication: RETINAL DETACHMENT
     Dosage: UNK
     Route: 042
     Dates: start: 20130108, end: 20130111
  26. ISOTONIC SODIUM CHLORIDE SOLUTION [Concomitant]
     Indication: RETINAL DETACHMENT
     Dosage: UNK
     Route: 042
     Dates: start: 20130108
  27. LACTATED RINGERS [Concomitant]
     Indication: RETINAL DETACHMENT
     Dosage: UNK
     Route: 042
     Dates: start: 20130108, end: 20130108
  28. PREDNISOLONE SODIUM SUCCINATE [Concomitant]
     Indication: RETINAL DETACHMENT
     Dosage: UNK
     Route: 042
     Dates: start: 20130108, end: 20130111
  29. NEO-MEDROL                         /00259601/ [Concomitant]
     Indication: RETINAL DETACHMENT
     Dosage: UNK
     Dates: start: 20130123
  30. CARPRONIUM CHLORIDE [Concomitant]
     Indication: ALOPECIA
     Dosage: UNK
     Route: 062
     Dates: start: 20121221
  31. HEPARINOID [Concomitant]
     Dosage: UNK
     Dates: start: 20121221
  32. DEXAMETHASONE SODIUM PHOSPHATE [Concomitant]
     Indication: RETINAL DETACHMENT
     Dosage: UNK
     Route: 042
     Dates: start: 20130108, end: 20130108

REACTIONS (2)
  - Retinal detachment [Unknown]
  - Condition aggravated [Unknown]
